FAERS Safety Report 13773653 (Version 1)
Quarter: 2017Q3

REPORT INFORMATION
  Report Type: Report from Study
  Country: US (occurrence: US)
  Receive Date: 20170720
  Receipt Date: 20170720
  Transmission Date: 20171127
  Serious: Yes (Other)
  Sender: FDA-Public Use
  Company Number: PHHO2017US008576

PATIENT
  Age: 50 Year
  Sex: Male
  Weight: 83.6 kg

DRUGS (32)
  1. ASA [Concomitant]
     Active Substance: ASPIRIN
     Indication: CARDIOVASCULAR EVENT PROPHYLAXIS
     Dosage: 325 MG, QD
     Route: 065
     Dates: start: 200711
  2. LISINOPRIL. [Concomitant]
     Active Substance: LISINOPRIL
     Indication: HYPERTENSION
     Dosage: 20 MG, QD
     Route: 065
     Dates: start: 200711, end: 20120301
  3. METOPROLOL. [Concomitant]
     Active Substance: METOPROLOL
     Indication: HYPERTENSION
     Dosage: 150 MG, QD
     Route: 065
     Dates: start: 200711, end: 20120103
  4. HYDROCODONE [Concomitant]
     Active Substance: HYDROCODONE
     Indication: CHEST PAIN
     Dosage: 1 DF, PRN
     Route: 065
     Dates: start: 20161128, end: 20161128
  5. HYDROCODONE [Concomitant]
     Active Substance: HYDROCODONE
     Dosage: 20 MG
     Route: 042
     Dates: start: 20161129, end: 20161129
  6. BECLOMETHASONE [Concomitant]
     Active Substance: BECLOMETHASONE
     Indication: CHRONIC OBSTRUCTIVE PULMONARY DISEASE
     Dosage: 1 DF, QD
     Route: 065
     Dates: start: 20150622
  7. EFFIENT [Concomitant]
     Active Substance: PRASUGREL HYDROCHLORIDE
     Indication: PROPHYLAXIS
     Dosage: 10 MG, QD
     Route: 048
     Dates: start: 2016
  8. ACZ885 [Suspect]
     Active Substance: CANAKINUMAB
     Indication: CARDIOVASCULAR EVENT PROPHYLAXIS
     Dosage: UNK
     Route: 058
     Dates: start: 20170120
  9. METOPROLOL. [Concomitant]
     Active Substance: METOPROLOL
     Dosage: 50 MG, QD
     Route: 048
     Dates: start: 20150622
  10. HCTZ [Concomitant]
     Active Substance: HYDROCHLOROTHIAZIDE
     Indication: HYPERTENSION
     Dosage: 20 MG, QD
     Route: 065
     Dates: start: 20120302, end: 20121115
  11. TYLENOL [Concomitant]
     Active Substance: ACETAMINOPHEN
     Dosage: 50 MG, QD
     Route: 048
     Dates: start: 20150617, end: 20150706
  12. ROBAXIN [Concomitant]
     Active Substance: METHOCARBAMOL
     Indication: BACK PAIN
     Dosage: 500 MG, QD
     Route: 048
     Dates: start: 20150612, end: 20150616
  13. CIALIS [Concomitant]
     Active Substance: TADALAFIL
     Indication: PRODUCT USED FOR UNKNOWN INDICATION
     Dosage: 20 MG, PRN
     Route: 065
  14. PRAVASTATIN. [Concomitant]
     Active Substance: PRAVASTATIN
     Indication: DYSLIPIDAEMIA
     Dosage: 20 MG, QD
     Route: 065
     Dates: start: 20110929, end: 20120301
  15. TYLENOL [Concomitant]
     Active Substance: ACETAMINOPHEN
     Indication: BACK PAIN
     Dosage: 500 MG, PRN
     Route: 065
     Dates: start: 20141221, end: 20141225
  16. IBUPROFEN. [Concomitant]
     Active Substance: IBUPROFEN
     Indication: BACK PAIN
     Dosage: 800 MG, PRN
     Route: 048
     Dates: start: 20150617, end: 20150619
  17. HYDROCODONE [Concomitant]
     Active Substance: HYDROCODONE
     Dosage: 2 DF, PRN
     Route: 065
     Dates: start: 20161129, end: 20161130
  18. MORPHINE [Concomitant]
     Active Substance: MORPHINE
     Indication: CHEST PAIN
     Dosage: 15 MG,
     Route: 042
     Dates: start: 20161128, end: 20161128
  19. FLOMAX [Concomitant]
     Active Substance: TAMSULOSIN HYDROCHLORIDE
     Indication: CHRONIC OBSTRUCTIVE PULMONARY DISEASE
     Dosage: 0.4 MG, PRN
     Route: 065
     Dates: start: 20161129, end: 20161130
  20. LIPITOR [Concomitant]
     Active Substance: ATORVASTATIN CALCIUM
     Indication: PRODUCT USED FOR UNKNOWN INDICATION
     Dosage: 40 MG, QD
     Route: 065
  21. BLINDED PLACEBO [Suspect]
     Active Substance: INVESTIGATIONAL PRODUCT
     Indication: CARDIOVASCULAR EVENT PROPHYLAXIS
     Dosage: CODE NOT BROKEN
     Route: 058
     Dates: start: 20110701, end: 20160930
  22. LISINOPRIL. [Concomitant]
     Active Substance: LISINOPRIL
     Dosage: 20 MG, QD
     Route: 048
     Dates: start: 20160629
  23. ATORVASTATIN [Concomitant]
     Active Substance: ATORVASTATIN
     Indication: DYSLIPIDAEMIA
     Dosage: 20 MG, QD
     Route: 065
     Dates: start: 200711, end: 20150929
  24. TYLENOL [Concomitant]
     Active Substance: ACETAMINOPHEN
     Dosage: 500 MG, BID
     Route: 065
     Dates: start: 20150617
  25. ALBUTEROL. [Concomitant]
     Active Substance: ALBUTEROL
     Indication: CHRONIC OBSTRUCTIVE PULMONARY DISEASE
     Dosage: 1 DF(PUFF), QD
     Route: 065
     Dates: start: 20150622
  26. METOPROLOL. [Concomitant]
     Active Substance: METOPROLOL
     Dosage: 50 MG, QD
     Route: 065
     Dates: start: 20120302, end: 20150621
  27. PERCOCET [Concomitant]
     Active Substance: ACETAMINOPHEN\OXYCODONE HYDROCHLORIDE
     Indication: CHEST PAIN
     Dosage: 10 MG, QD (5 TO 325 MGPER TABLET)
     Route: 048
     Dates: start: 20170317
  28. NIACIN. [Concomitant]
     Active Substance: NIACIN
     Indication: HYPERTENSION
     Dosage: 100 MG, QD
     Route: 065
  29. BLINDED ACZ885 [Suspect]
     Active Substance: CANAKINUMAB
     Indication: CARDIOVASCULAR EVENT PROPHYLAXIS
     Dosage: CODE NOT BROKEN
     Route: 058
     Dates: start: 20110701, end: 20160930
  30. BLINDED NO TREATMENT RECEIVED [Suspect]
     Active Substance: INVESTIGATIONAL PRODUCT
     Indication: CARDIOVASCULAR EVENT PROPHYLAXIS
     Dosage: CODE NOT BROKEN
     Route: 058
     Dates: start: 20110701, end: 20160930
  31. LISINOPRIL. [Concomitant]
     Active Substance: LISINOPRIL
     Dosage: 40 MG, QD
     Route: 065
     Dates: start: 20120302, end: 20150621
  32. MELOXICAM. [Concomitant]
     Active Substance: MELOXICAM
     Indication: BACK PAIN
     Dosage: 7.5 MG, QD
     Route: 065
     Dates: start: 20141221, end: 20141224

REACTIONS (1)
  - Lung neoplasm malignant [Not Recovered/Not Resolved]

NARRATIVE: CASE EVENT DATE: 20170503
